FAERS Safety Report 15430761 (Version 4)
Quarter: 2019Q3

REPORT INFORMATION
  Report Type: Report from Study
  Country: CH (occurrence: CH)
  Receive Date: 20180926
  Receipt Date: 20190719
  Transmission Date: 20191004
  Serious: Yes (Death)
  Sender: FDA-Public Use
  Company Number: PHHY2018CH098889

PATIENT
  Age: 62 Year
  Sex: Male

DRUGS (15)
  1. PROCORALAN [Concomitant]
     Active Substance: IVABRADINE
     Indication: CARDIOVASCULAR DISORDER
     Dosage: 75 MG, QD
     Route: 048
  2. MAGNESIOCARD [Concomitant]
     Active Substance: MAGNESIUM ASPARTATE HYDROCHLORIDE
     Indication: SUPPLEMENTATION THERAPY
     Dosage: 10 MMOL, UNK
     Route: 048
  3. COSENTYX [Suspect]
     Active Substance: SECUKINUMAB
     Indication: PSORIATIC ARTHROPATHY
     Dosage: 300 MG, Q4W
     Route: 065
     Dates: start: 20160125, end: 20160529
  4. ZALDIAR [Concomitant]
     Active Substance: ACETAMINOPHEN\TRAMADOL HYDROCHLORIDE
     Indication: BACK PAIN
     Dosage: 1 DF, PRN
     Route: 048
  5. COSENTYX [Suspect]
     Active Substance: SECUKINUMAB
     Indication: ANKYLOSING SPONDYLITIS
     Dosage: 300 MG, Q4W
     Route: 065
     Dates: start: 20170321
  6. FLUDEX [Concomitant]
     Indication: HYPERTENSION
     Dosage: 1.5 MG, QD
     Route: 048
  7. COSENTYX [Suspect]
     Active Substance: SECUKINUMAB
     Indication: PSORIASIS
     Dosage: 300 MG, QW
     Route: 065
     Dates: start: 20160104, end: 20160124
  8. ATACAND [Concomitant]
     Active Substance: CANDESARTAN CILEXETIL
     Indication: HYPERTENSION
     Dosage: 32 MG, BID
     Route: 048
  9. ISOPHANE INSULIN [Concomitant]
     Active Substance: INSULIN NOS
     Indication: DIABETES MELLITUS
     Dosage: 24 MG, QD
     Route: 058
  10. EFFEXOR XR [Concomitant]
     Active Substance: VENLAFAXINE HYDROCHLORIDE
     Indication: PRODUCT USED FOR UNKNOWN INDICATION
     Dosage: UNK UKN, UNK
     Route: 065
     Dates: start: 2012
  11. SORTIS [Concomitant]
     Active Substance: ATORVASTATIN
     Indication: CARDIOVASCULAR DISORDER
     Dosage: 40 MG, UNK
     Route: 048
  12. ISOPHANE INSULIN [Concomitant]
     Active Substance: INSULIN NOS
     Indication: DIABETIC NEUROPATHY
  13. LYRICA [Concomitant]
     Active Substance: PREGABALIN
     Indication: EPILEPSY
     Dosage: 25 MG, QD
     Route: 048
     Dates: start: 201502
  14. ZOLPIDEM [Concomitant]
     Active Substance: ZOLPIDEM TARTRATE
     Indication: PRODUCT USED FOR UNKNOWN INDICATION
     Dosage: 10 MG, QD
     Route: 048
  15. AMLODIPINE [Concomitant]
     Active Substance: AMLODIPINE BESYLATE
     Indication: HYPERTENSION
     Dosage: 5 MG, QD
     Route: 048

REACTIONS (2)
  - Death [Fatal]
  - Cystitis [Unknown]
